FAERS Safety Report 8511556-1 (Version None)
Quarter: 2012Q3

REPORT INFORMATION
  Report Type: 
  Country: None (occurrence: None)
  Receive Date: 20120716
  Receipt Date: 20120709
  Transmission Date: 20120928
  Serious: Yes (Hospitalization, Other)
  Sender: FDA-Public Use
  Company Number: PHHY2012CA039584

PATIENT
  Sex: Female

DRUGS (2)
  1. SANDOSTATIN LAR [Suspect]
     Indication: CARCINOID TUMOUR
     Dosage: 30 MG, EVERY 4 WEEKS
     Route: 030
     Dates: start: 20060302
  2. SANDOSTATIN LAR [Suspect]
     Dosage: 30 MG, QMO
     Route: 048

REACTIONS (2)
  - HERPES ZOSTER [None]
  - BLOOD PRESSURE SYSTOLIC INCREASED [None]
